FAERS Safety Report 6904713-9 (Version None)
Quarter: 2010Q3

REPORT INFORMATION
  Report Type: 
  Country: None (occurrence: None)
  Receive Date: 20100804
  Receipt Date: 20100723
  Transmission Date: 20110219
  Serious: Yes (Hospitalization)
  Sender: FDA-Public Use
  Company Number: BR-BIOGENIDEC-2009BI017329

PATIENT
  Age: 32 Year
  Sex: Male

DRUGS (1)
  1. AVONEX [Suspect]
     Indication: MULTIPLE SCLEROSIS
     Route: 030

REACTIONS (6)
  - ANXIETY [None]
  - DECREASED APPETITE [None]
  - INSOMNIA [None]
  - MUSCULOSKELETAL PAIN [None]
  - NERVOUSNESS [None]
  - OSTEONECROSIS [None]
